FAERS Safety Report 19882495 (Version 1)
Quarter: 2021Q3

REPORT INFORMATION
  Report Type: Report from Study
  Country: US (occurrence: US)
  Receive Date: 20210924
  Receipt Date: 20210924
  Transmission Date: 20211014
  Serious: Yes (Other)
  Sender: FDA-Public Use
  Company Number: US-JAZZ-2021-US-017689

PATIENT
  Sex: Male

DRUGS (6)
  1. XYREM [Suspect]
     Active Substance: SODIUM OXYBATE
     Indication: CATAPLEXY
     Dosage: 3 GRAM, BID
     Route: 048
     Dates: start: 201410, end: 201503
  2. XYREM [Suspect]
     Active Substance: SODIUM OXYBATE
     Dosage: 4.5 GRAM, BID
     Route: 048
     Dates: start: 201612, end: 201704
  3. XYREM [Suspect]
     Active Substance: SODIUM OXYBATE
     Indication: NARCOLEPSY
     Dosage: 2.25 GRAM, BID
     Route: 048
     Dates: start: 201410, end: 201410
  4. XYREM [Suspect]
     Active Substance: SODIUM OXYBATE
     Dosage: 4.5 GRAM,BID
     Route: 048
     Dates: start: 201504, end: 201605
  5. XYREM [Suspect]
     Active Substance: SODIUM OXYBATE
     Dosage: DOSE ADJUSTMENT
     Route: 048
     Dates: start: 201705, end: 202005
  6. XYREM [Suspect]
     Active Substance: SODIUM OXYBATE
     Dosage: 3 GRAM, BID
     Route: 048
     Dates: start: 202005, end: 202107

REACTIONS (15)
  - Gastrooesophageal reflux disease [Unknown]
  - Joint arthroplasty [Unknown]
  - Onychomycosis [Unknown]
  - Melanocytic naevus [Unknown]
  - Lipoma [Unknown]
  - Vomiting [Unknown]
  - Musculoskeletal pain [Unknown]
  - Hyperlipidaemia [Unknown]
  - Rectal haemorrhage [Unknown]
  - Diabetes mellitus [Unknown]
  - Essential hypertension [Unknown]
  - Nausea [Unknown]
  - Tinea pedis [Unknown]
  - Seasonal allergy [Unknown]
  - Mass [Unknown]
